FAERS Safety Report 8204814-1 (Version None)
Quarter: 2012Q1

REPORT INFORMATION
  Report Type: 
  Country: None (occurrence: None)
  Receive Date: 20120313
  Receipt Date: 20120228
  Transmission Date: 20120608
  Serious: Yes (Hospitalization)
  Sender: FDA-Public Use
  Company Number: JP-MYLANLABS-2012S1004795

PATIENT
  Age: 60 Year
  Sex: Male

DRUGS (6)
  1. SORAFENIB [Interacting]
     Dosage: INCREASED TO 400 MG/DAY FROM DAY 14
     Route: 065
     Dates: start: 20100801
  2. SORAFENIB [Interacting]
     Dosage: INCREASED TO 600 MG/DAY ON DAY 63
     Route: 065
     Dates: start: 20100801
  3. WARFARIN SODIUM [Suspect]
     Indication: ANTICOAGULANT THERAPY
     Dosage: 3 MG/DAY
     Route: 065
     Dates: start: 20080501
  4. ASPIRIN [Concomitant]
     Dosage: 100 MG/DAY
     Route: 065
  5. WARFARIN SODIUM [Interacting]
     Dosage: 2 MG/DAY, AT THE START OF SORAFENIB TREATMENT
     Route: 065
     Dates: start: 20100801
  6. SORAFENIB [Interacting]
     Indication: HEPATIC NEOPLASM MALIGNANT
     Dosage: 200 MG/DAY
     Route: 065
     Dates: start: 20100801

REACTIONS (2)
  - GASTROINTESTINAL HAEMORRHAGE [None]
  - DRUG INTERACTION [None]
